FAERS Safety Report 8564191-3 (Version None)
Quarter: 2012Q3

REPORT INFORMATION
  Report Type: 
  Country: None (occurrence: None)
  Receive Date: 20120803
  Receipt Date: 20120726
  Transmission Date: 20120928
  Serious: Yes (Other)
  Sender: FDA-Public Use
  Company Number: US-ABBOTT-12P-163-0961550-00

PATIENT
  Sex: Male
  Weight: 74.91 kg

DRUGS (11)
  1. HUMIRA [Suspect]
     Indication: PSORIATIC ARTHROPATHY
  2. DEXAMETHASONE [Suspect]
     Indication: ARTHRALGIA
     Dates: start: 19940101
  3. OMEPRAZOLE [Concomitant]
     Indication: DYSPEPSIA
  4. METHADONE HCL [Concomitant]
     Indication: BONE PAIN
  5. METHOTREXATE [Concomitant]
     Indication: RHEUMATOID ARTHRITIS
  6. FOLIC ACID [Concomitant]
     Indication: VITAMIN SUPPLEMENTATION
  7. DEPAKOTE [Concomitant]
     Indication: MIGRAINE
  8. HUMIRA [Suspect]
     Indication: RHEUMATOID ARTHRITIS
     Dates: start: 20040101
  9. GABAPENTIN [Concomitant]
     Indication: PAIN
  10. BACLOFEN [Concomitant]
     Indication: MYALGIA
  11. VITAMIN D [Concomitant]
     Indication: VITAMIN SUPPLEMENTATION

REACTIONS (10)
  - INTERVERTEBRAL DISC DISORDER [None]
  - PROCEDURAL PAIN [None]
  - BACK PAIN [None]
  - INSOMNIA [None]
  - ARTHRALGIA [None]
  - SPINAL COMPRESSION FRACTURE [None]
  - MYALGIA [None]
  - PSORIASIS [None]
  - OSTEONECROSIS [None]
  - AORTIC ANEURYSM [None]
